FAERS Safety Report 5870699-1 (Version None)
Quarter: 2008Q3

REPORT INFORMATION
  Report Type: 
  Country: None (occurrence: None)
  Receive Date: 20080904
  Receipt Date: 20080904
  Transmission Date: 20090109
  Serious: Yes (Hospitalization, Other)
  Sender: FDA-Public Use
  Company Number: PHEH1997US00921

PATIENT
  Sex: Male
  Weight: 78 kg

DRUGS (8)
  1. NEORAL [Suspect]
     Route: 048
     Dates: start: 19950912
  2. IMURAN [Concomitant]
  3. PREDNISONE [Concomitant]
  4. LABETOLOL (LABETALOL) [Concomitant]
  5. PROCARDIA XL [Concomitant]
  6. NIZATIDINE [Concomitant]
  7. ASPIRIN [Concomitant]
  8. HYDROCODONE BITARTRATE [Concomitant]

REACTIONS (2)
  - BASAL CELL CARCINOMA [None]
  - SKIN CANCER [None]
